FAERS Safety Report 8278570 (Version 11)
Quarter: 2013Q2

REPORT INFORMATION
  Report Type: Spontaneous
  Country: US (occurrence: US)
  Receive Date: 20111207
  Receipt Date: 20130517
  Transmission Date: 20140414
  Serious: Yes (Hospitalization)
  Sender: FDA-Public Use
  Company Number: US-ACTELION-A-US2011-57719

PATIENT
  Age: 30 Year
  Sex: Female

DRUGS (6)
  1. VELETRI [Suspect]
     Indication: PULMONARY ARTERIAL HYPERTENSION
     Dosage: 58.5 NG/KG, PER MIN
     Route: 042
     Dates: start: 20110320
  2. VELETRI [Suspect]
     Dosage: 45 NG/KG, PER MIN
     Route: 042
     Dates: start: 20110303
  3. VELETRI [Suspect]
     Dosage: 45 NG/KG, PER MIN
     Route: 042
  4. TRACLEER [Suspect]
     Indication: PULMONARY ARTERIAL HYPERTENSION
     Dosage: 62.5 MG, BID
     Route: 048
  5. SILDENAFIL [Concomitant]
  6. OXYGEN [Concomitant]

REACTIONS (19)
  - Pericarditis [Unknown]
  - Abdominal discomfort [Unknown]
  - Dehydration [Unknown]
  - Fluid retention [Unknown]
  - Fluid overload [Unknown]
  - Pericardial effusion [Unknown]
  - Underdose [Unknown]
  - Device alarm issue [Unknown]
  - Device issue [Unknown]
  - Malaise [Unknown]
  - Weight decreased [Unknown]
  - Alopecia [Unknown]
  - Hypothyroidism [Unknown]
  - Hyperthyroidism [Unknown]
  - Amenorrhoea [Unknown]
  - Dizziness [Recovered/Resolved]
  - Device leakage [Recovered/Resolved]
  - Nausea [Unknown]
  - Weight decreased [Unknown]
